FAERS Safety Report 4476241-4 (Version None)
Quarter: 2004Q3

REPORT INFORMATION
  Report Type: 
  Country: None (occurrence: None)
  Receive Date: 20040923
  Receipt Date: 20040810
  Transmission Date: 20050211
  Serious: No
  Sender: FDA-Public Use
  Company Number: USA040874213

PATIENT
  Age: 56 Year
  Sex: Female
  Weight: 56 kg

DRUGS (7)
  1. FORTEO [Suspect]
     Indication: OSTEOPOROSIS
     Dosage: 20 UG/1 DAY
     Dates: start: 20040710, end: 20040730
  2. ATENOLOL [Concomitant]
  3. TRAZODONE HCL [Concomitant]
  4. CELEXA [Concomitant]
  5. FLEXERIL [Concomitant]
  6. BIEST 2.5 [Concomitant]
  7. PROGESTERONE [Concomitant]

REACTIONS (17)
  - ABDOMINAL DISTENSION [None]
  - APATHY [None]
  - CONSTIPATION [None]
  - DECREASED APPETITE [None]
  - DEPRESSION [None]
  - DYSPEPSIA [None]
  - FATIGUE [None]
  - HOT FLUSH [None]
  - HYPERHIDROSIS [None]
  - HYPERKINETIC HEART SYNDROME [None]
  - IRRITABLE BOWEL SYNDROME [None]
  - NAUSEA [None]
  - PAIN [None]
  - PAIN IN EXTREMITY [None]
  - PALPITATIONS [None]
  - TACHYCARDIA [None]
  - WEIGHT DECREASED [None]
